FAERS Safety Report 8901389 (Version 1)
Quarter: 2012Q4

REPORT INFORMATION
  Report Type: Report from Study
  Country: CA (occurrence: CA)
  Receive Date: 20121109
  Receipt Date: 20121109
  Transmission Date: 20130627
  Serious: Yes (Other)
  Sender: FDA-Public Use
  Company Number: CA-JNJFOC-20121101141

PATIENT
  Sex: Female
  Weight: 57.7 kg

DRUGS (1)
  1. REMICADE [Suspect]
     Indication: CROHN^S DISEASE
     Route: 042
     Dates: start: 20120928, end: 20121018

REACTIONS (2)
  - Obstruction [Not Recovered/Not Resolved]
  - Drug ineffective [Unknown]
